FAERS Safety Report 5235502-1 (Version None)
Quarter: 2007Q1

REPORT INFORMATION
  Report Type: 
  Country: None (occurrence: None)
  Receive Date: 20070212
  Receipt Date: 20070131
  Transmission Date: 20070707
  Serious: Yes (Hospitalization)
  Sender: FDA-Public Use
  Company Number: PHHO2006US05433

PATIENT
  Age: 65 Year
  Sex: Male
  Weight: 109.5 kg

DRUGS (21)
  1. LOTREL [Suspect]
     Indication: HYPERTENSION
     Dosage: LEVEL 3
     Route: 048
     Dates: start: 20050628, end: 20060301
  2. LOTREL [Suspect]
     Dosage: LEVEL 1
     Route: 048
     Dates: start: 20050502, end: 20050602
  3. LOTREL [Suspect]
     Dosage: LEVEL 2
     Route: 048
     Dates: start: 20050603, end: 20050627
  4. COSOPT [Suspect]
  5. KETOROLAC TROMETHAMINE [Suspect]
  6. ALLOPURINOL SODIUM [Suspect]
     Dosage: 300 MG, UNK
     Route: 048
  7. OFLOXACIN [Suspect]
  8. PREDNISOLONE [Suspect]
  9. ASPIRIN [Concomitant]
  10. AVANDIA [Concomitant]
  11. DARVON-N [Concomitant]
  12. HYDROCODONE [Concomitant]
  13. ACETAMINOPHEN [Concomitant]
  14. NPH INSULIN [Concomitant]
  15. INSULIN [Concomitant]
  16. LASIX [Concomitant]
  17. METOPROLOL TARTRATE [Concomitant]
  18. NEURONTIN [Concomitant]
  19. MONTELUKAST [Concomitant]
  20. NITROGLYCERIN [Concomitant]
  21. SIMVASTATIN [Concomitant]

REACTIONS (10)
  - ANGIOEDEMA [None]
  - DRUG HYPERSENSITIVITY [None]
  - DYSPNOEA [None]
  - GOUT [None]
  - LENS IMPLANT [None]
  - PLEURISY [None]
  - RESPIRATORY DISORDER [None]
  - SWELLING FACE [None]
  - SWOLLEN TONGUE [None]
  - URTICARIA [None]
